FAERS Safety Report 12916612 (Version 1)
Quarter: 2016Q4

REPORT INFORMATION
  Report Type: Spontaneous
  Country: US (occurrence: US)
  Receive Date: 20161107
  Receipt Date: 20161107
  Transmission Date: 20170207
  Serious: Yes (Other)
  Sender: FDA-Public Use
  Company Number: None

PATIENT
  Age: 37 Year
  Sex: Female

DRUGS (1)
  1. GLATOPA [Suspect]
     Active Substance: GLATIRAMER ACETATE
     Indication: MULTIPLE SCLEROSIS
     Route: 058
     Dates: start: 20151020, end: 20161105

REACTIONS (5)
  - Injection site erythema [None]
  - Urticaria [None]
  - Influenza like illness [None]
  - Injection site pain [None]
  - Muscular weakness [None]

NARRATIVE: CASE EVENT DATE: 20161105
